FAERS Safety Report 21493646 (Version 1)
Quarter: 2022Q4

REPORT INFORMATION
  Report Type: Spontaneous
  Country: US (occurrence: US)
  Receive Date: 20221021
  Receipt Date: 20221021
  Transmission Date: 20230113
  Serious: No
  Sender: FDA-Public Use
  Company Number: US-BRISTOL-MYERS SQUIBB COMPANY-2022-125250

PATIENT
  Age: 40 Year
  Sex: Male
  Weight: 119.74 kg

DRUGS (1)
  1. POMALYST [Suspect]
     Active Substance: POMALIDOMIDE
     Indication: Plasma cell myeloma
     Dosage: FREQ: 3W, 1W OFF
     Route: 048

REACTIONS (3)
  - Influenza [Unknown]
  - Dyspnoea [Unknown]
  - Cough [Unknown]
